FAERS Safety Report 4398859-X (Version None)
Quarter: 2004Q2

REPORT INFORMATION
  Report Type: 
  Country: None (occurrence: None)
  Receive Date: 20040621
  Receipt Date: 20040312
  Transmission Date: 20050107
  Serious: Yes (Other)
  Sender: FDA-Public Use
  Company Number: USA-2003-0008185

PATIENT
  Age: 21 Year
  Sex: Male
  Weight: 105.7 kg

DRUGS (2)
  1. OXYCONTIN [Suspect]
     Indication: PAIN
     Dosage: MG
     Dates: start: 20000301, end: 20020801
  2. MSIR CAPSULES [Concomitant]

REACTIONS (15)
  - ANXIETY [None]
  - BIPOLAR I DISORDER [None]
  - CONSTIPATION [None]
  - DISORIENTATION [None]
  - DRUG DEPENDENCE [None]
  - DRUG WITHDRAWAL SYNDROME [None]
  - DYSPEPSIA [None]
  - FEELING JITTERY [None]
  - HYPERHIDROSIS [None]
  - INJURY [None]
  - INSOMNIA [None]
  - MEMORY IMPAIRMENT [None]
  - PAIN [None]
  - PALLOR [None]
  - TEMPERATURE REGULATION DISORDER [None]
